FAERS Safety Report 9299842 (Version 3)
Quarter: 2013Q4

REPORT INFORMATION
  Report Type: Spontaneous
  Country: US (occurrence: None)
  Receive Date: 20121227
  Receipt Date: 20131226
  Transmission Date: 20140711
  Serious: Yes (Hospitalization, Other)
  Sender: FDA-Public Use
  Company Number: PHEH2012US017885

PATIENT
  Age: 53 Year
  Sex: Male

DRUGS (6)
  1. AFINITOR [Suspect]
     Indication: TUBEROUS SCLEROSIS
     Route: 048
     Dates: start: 20120728, end: 20120823
  2. AFINITOR [Suspect]
     Indication: ANGIOMYOLIPOMA
     Route: 048
     Dates: start: 20120728, end: 20120823
  3. DEPAKOTE (VALPROATE SEMISODIUM) [Concomitant]
  4. SOLBATROL (SALBUTAMOL) [Concomitant]
  5. BANZYL (BENZALAMIDE) [Concomitant]
  6. ZONEGAL (ZINC SULFATE) [Concomitant]

REACTIONS (4)
  - Pneumonia [None]
  - Acne [None]
  - Fatigue [None]
  - Pyrexia [None]
